FAERS Safety Report 6150891-1 (Version None)
Quarter: 2009Q2

REPORT INFORMATION
  Report Type: 
  Country: None (occurrence: None)
  Receive Date: 20090408
  Receipt Date: 20090401
  Transmission Date: 20091009
  Serious: Yes (Other)
  Sender: FDA-Public Use
  Company Number: 09US000552

PATIENT
  Age: 37 Year
  Sex: Female
  Weight: 80.7 kg

DRUGS (4)
  1. TIOCONAZOLE [Suspect]
     Indication: FUNGAL INFECTION
     Dosage: 1 DF, SINGLE, VAGINAL
     Route: 067
     Dates: start: 20090325, end: 20090325
  2. KLONOPIN [Concomitant]
  3. ABILIFY [Concomitant]
  4. TRAZODONE HCL [Concomitant]

REACTIONS (3)
  - HYPERSENSITIVITY [None]
  - MIDDLE INSOMNIA [None]
  - VULVOVAGINAL PAIN [None]
